FAERS Safety Report 13429419 (Version 1)
Quarter: 2017Q2

REPORT INFORMATION
  Report Type: Spontaneous
  Country: FR (occurrence: FR)
  Receive Date: 20170411
  Receipt Date: 20170411
  Transmission Date: 20170830
  Serious: Yes (Other)
  Sender: FDA-Public Use
  Company Number: FR-ASTRAZENECA-2017SE22544

PATIENT
  Age: 363 Month
  Sex: Female
  Weight: 53 kg

DRUGS (4)
  1. XEROQUEL [Suspect]
     Active Substance: QUETIAPINE FUMARATE
     Indication: BIPOLAR DISORDER
     Route: 048
     Dates: start: 2015
  2. PRAZEPAM [Concomitant]
     Active Substance: PRAZEPAM
     Indication: ANXIETY
     Dosage: 1 TO 3 DF PER DAY
  3. XEROQUEL [Suspect]
     Active Substance: QUETIAPINE FUMARATE
     Indication: BIPOLAR DISORDER
     Route: 048
     Dates: start: 20170203
  4. XEROQUEL [Suspect]
     Active Substance: QUETIAPINE FUMARATE
     Indication: BIPOLAR DISORDER
     Dosage: 2 DF OF 50 MG IN THE MORNING AND IN THE EVENING
     Route: 048
     Dates: start: 201607

REACTIONS (3)
  - Hypermetropia [Not Recovered/Not Resolved]
  - Off label use [Recovered/Resolved]
  - Product use issue [Recovered/Resolved]

NARRATIVE: CASE EVENT DATE: 201509
